FAERS Safety Report 13139413 (Version 2)
Quarter: 2017Q1

REPORT INFORMATION
  Report Type: Report from Study
  Country: JP (occurrence: JP)
  Receive Date: 20170123
  Receipt Date: 20170203
  Transmission Date: 20170428
  Serious: Yes (Hospitalization)
  Sender: FDA-Public Use
  Company Number: JP-GLAXOSMITHKLINE-JP2017006868

PATIENT
  Sex: Male
  Weight: 70 kg

DRUGS (9)
  1. SULTANOL [Concomitant]
     Active Substance: ALBUTEROL SULFATE
     Indication: CHRONIC OBSTRUCTIVE PULMONARY DISEASE
     Dosage: UNK
  2. LIVALO [Concomitant]
     Active Substance: PITAVASTATIN CALCIUM
     Indication: DISEASE COMPLICATION
     Dosage: UNK
  3. LANSOPRAZOLE-OD TABLETS [Concomitant]
     Indication: PROPHYLAXIS
     Dosage: UNK
  4. CALBLOCK [Concomitant]
     Active Substance: AZELNIDIPINE
     Indication: DISEASE COMPLICATION
     Dosage: UNK
  5. BAYASPIRIN [Concomitant]
     Active Substance: ASPIRIN
     Indication: DISEASE COMPLICATION
     Dosage: UNK
  6. FUROSEMIDE TABLETS [Concomitant]
     Active Substance: FUROSEMIDE
     Indication: DISEASE COMPLICATION
     Dosage: UNK
  7. MEDICON (DEXTROMETHORPHAN HYDROBROMIDE HYDRATE) [Concomitant]
     Indication: CHRONIC OBSTRUCTIVE PULMONARY DISEASE
     Dosage: UNK
  8. PL [Concomitant]
     Active Substance: ACETAMINOPHEN\CAFFEINE\PROMETHAZINE\SALICYLAMIDE
     Indication: PROPHYLAXIS
     Dosage: UNK
  9. UMECLIDINIUM BR+VILANTEROL TRIFENATATE [Suspect]
     Active Substance: UMECLIDINIUM BROMIDE\VILANTEROL TRIFENATATE
     Indication: CHRONIC OBSTRUCTIVE PULMONARY DISEASE
     Dosage: 1 DF, QD
     Route: 055
     Dates: start: 20151216, end: 20160818

REACTIONS (1)
  - Syncope [Recovered/Resolved]

NARRATIVE: CASE EVENT DATE: 20160210
